FAERS Safety Report 17813010 (Version 1)
Quarter: 2020Q2

REPORT INFORMATION
  Report Type: Spontaneous
  Country: AT (occurrence: AT)
  Receive Date: 20200521
  Receipt Date: 20200521
  Transmission Date: 20200714
  Serious: Yes (Other)
  Sender: FDA-Public Use
  Company Number: AT-TEVA-2020-AT-1237552

PATIENT
  Age: 58 Year
  Sex: Female

DRUGS (4)
  1. DICLOBENE 75 MG - AMPULLEN [Suspect]
     Active Substance: DICLOFENAC SODIUM
     Dosage: ACCORDING TO SPECIALIST INFORMATION
     Route: 042
     Dates: start: 20191217, end: 20191217
  2. NEXIUM 40 MG MAGENSAFTRESISTENTE TABLETTEN [Concomitant]
     Route: 048
  3. THYREX100 MIKROGRAMM-TABLETTEN [Concomitant]
     Route: 048
  4. FOSTER 100/6 MIKROGRAMM/SPRUHSTOB [Concomitant]

REACTIONS (3)
  - Urticaria [Unknown]
  - Bronchospasm [Unknown]
  - Type I hypersensitivity [Unknown]

NARRATIVE: CASE EVENT DATE: 20191217
